FAERS Safety Report 7372599-7 (Version None)
Quarter: 2011Q1

REPORT INFORMATION
  Report Type: 
  Country: None (occurrence: None)
  Receive Date: 20110324
  Receipt Date: 20110310
  Transmission Date: 20110831
  Serious: Yes (Hospitalization)
  Sender: FDA-Public Use
  Company Number: JP-MERCK-1102USA02576

PATIENT
  Sex: Female

DRUGS (2)
  1. JANUVIA [Suspect]
     Route: 048
     Dates: start: 20110101, end: 20110201
  2. AMARYL [Suspect]
     Route: 048
     Dates: end: 20110101

REACTIONS (1)
  - HYPERGLYCAEMIA [None]
